FAERS Safety Report 6558032-3 (Version None)
Quarter: 2010Q1

REPORT INFORMATION
  Report Type: 
  Country: None (occurrence: None)
  Receive Date: 20100129
  Receipt Date: 20100119
  Transmission Date: 20100710
  Serious: Yes (Other)
  Sender: FDA-Public Use
  Company Number: JP-ROCHE-681719

PATIENT
  Age: 63 Year
  Sex: Female

DRUGS (1)
  1. HERCEPTIN [Suspect]
     Indication: BREAST CANCER
     Route: 041

REACTIONS (2)
  - AORTIC VALVE INCOMPETENCE [None]
  - MITRAL VALVE INCOMPETENCE [None]
